FAERS Safety Report 5665245-1 (Version None)
Quarter: 2008Q1

REPORT INFORMATION
  Report Type: 
  Country: None (occurrence: None)
  Receive Date: 20080314
  Receipt Date: 20080110
  Transmission Date: 20080703
  Serious: No
  Sender: FDA-Public Use
  Company Number: US-ABBOTT-07P-163-0419360-00

PATIENT
  Sex: Female
  Weight: 81.72 kg

DRUGS (5)
  1. HUMIRA [Suspect]
     Indication: SKIN CANCER
     Dosage: SYRINGE
     Route: 058
     Dates: start: 20041125, end: 20060101
  2. HUMIRA [Suspect]
     Indication: BASAL CELL CARCINOMA
     Route: 058
     Dates: start: 20060301
  3. HUMIRA [Suspect]
     Indication: BENIGN NEOPLASM OF SKIN
     Dosage: PEN
     Route: 058
     Dates: end: 20070401
  4. HUMIRA [Suspect]
     Dosage: PEN
     Dates: start: 20070701, end: 20070923
  5. ASPIRIN [Concomitant]
     Indication: DRUG THERAPY
     Route: 048

REACTIONS (4)
  - HAND FRACTURE [None]
  - JOINT SWELLING [None]
  - MENISCUS LESION [None]
  - ROAD TRAFFIC ACCIDENT [None]
